FAERS Safety Report 6700930-1 (Version None)
Quarter: 2010Q2

REPORT INFORMATION
  Report Type: 
  Country: None (occurrence: None)
  Receive Date: 20100428
  Receipt Date: 20100414
  Transmission Date: 20101027
  Serious: Yes (Other)
  Sender: FDA-Public Use
  Company Number: GB-MYLANLABS-2010S1006407

PATIENT
  Age: 20 Year
  Sex: Male

DRUGS (4)
  1. SODIUM VALPROATE [Suspect]
     Indication: EPILEPSY
     Route: 048
     Dates: start: 20090707
  2. ZAPONEX [Suspect]
     Indication: DRUG USE FOR UNKNOWN INDICATION
     Route: 048
     Dates: start: 20080710
  3. HYOSCINE HBR HYT [Concomitant]
     Indication: DRUG USE FOR UNKNOWN INDICATION
  4. SIMVASTATIN [Concomitant]
     Indication: DRUG USE FOR UNKNOWN INDICATION

REACTIONS (1)
  - SINUS TACHYCARDIA [None]
